FAERS Safety Report 5506621-7 (Version None)
Quarter: 2007Q4

REPORT INFORMATION
  Report Type: 
  Country: None (occurrence: None)
  Receive Date: 20071105
  Receipt Date: 20071022
  Transmission Date: 20080405
  Serious: Yes (Death, Other)
  Sender: FDA-Public Use
  Company Number: CA-ROCHE-480173

PATIENT
  Age: 15 Year
  Sex: Male

DRUGS (14)
  1. MYCOPHENOLATE MOFETIL [Suspect]
     Indication: PROPHYLAXIS AGAINST GRAFT VERSUS HOST DISEASE
     Route: 042
  2. CYCLOSPORINE [Suspect]
     Indication: PROPHYLAXIS AGAINST GRAFT VERSUS HOST DISEASE
     Dosage: TWICE DAILY STARTING ON DAY 1, TARGETING A WHOLE BLOOD TROUGH LEVEL OF 300-400 NG/ML,
     Route: 042
  3. METHOTREXATE [Suspect]
     Indication: PROPHYLAXIS AGAINST GRAFT VERSUS HOST DISEASE
     Dosage: METHOTREXATE 15 MG/M2 INTRAVENOUS ON DAY 1 AND 10 MG/M2 INTRAVENOUS ON DAYS DAY 3 AND DAY 6
     Route: 042
  4. METHYLPREDNISOLONE [Suspect]
     Indication: PROPHYLAXIS AGAINST GRAFT VERSUS HOST DISEASE
     Dosage: METHYLPREDNISOLONE 0.4 MG/KG/ DOSE TWICE DAILY FROM DAY -4 TO DAY 28 WITH SUBSEQUENT DOSAGE REDUCTI+
     Route: 042
  5. METHYLPREDNISOLONE [Suspect]
     Dosage: METHYLPREDNISOLONE DOSAGE WAS INCREASED TO 2 MG/KG INTRAVENOUS TWICE DAILY
     Route: 042
  6. OCTREOTIDE ACETATE [Suspect]
     Indication: DRUG USE FOR UNKNOWN INDICATION
     Route: 042
  7. NEUPOGEN [Concomitant]
     Dosage: 5 MG/KG/DAY S.C. FROM DAY 5 UNTIL NEUTROPHIL COUNTS WERE 41.0_109/L FOR AT LEAST TWO CONSECUTIVE DA+
     Route: 058
  8. FLUDARABINE PHOSPHATE [Concomitant]
     Dosage: FLUDARABINE 30 MG/M2/DAY INTRAVENOUS FROM DAY 10 TO DAY 5 (TOTAL DOSE 180 MG/M2),
     Route: 042
  9. CYCLOPHOSPHAMIDE [Concomitant]
     Dosage: CYCLOPHOSPHAMIDE 60 MG/KG/DAY INTRAVENOUS ON DAYS 6 AND 5 (TOTAL DOSE 120 MG/KG)
     Route: 042
  10. SULFAMETHOXAZOLE [Concomitant]
     Dosage: TRIMETHOPRIM-SULFAMETHOXAZOLE 75 MG TRIMETHOPRIM/M2 TWICE DAILY ORALLY STARTING 1 DAY BEFORE CONDIT+
     Route: 048
  11. 1 CONCOMITANT DRUG [Concomitant]
     Dosage: DRUG NAME REPORTED AS IMMUNOGLOBULINS.
  12. ATGAM [Concomitant]
     Dosage: EQUINE ANTITHYMOCYTE GLOBULIN 40 MG/KG/DAY FROM DAY 4 TO 1 (TOTAL DOSE 160 MG/KG).
  13. FLUCONAZOLE [Concomitant]
     Dosage: FROM DAY -3
     Route: 048
  14. ACYCLOVIR [Concomitant]
     Dosage: FROM DAY -3 TO 20
     Route: 042

REACTIONS (15)
  - ABDOMINAL PAIN [None]
  - BACTERIAL INFECTION [None]
  - BLOOD BILIRUBIN INCREASED [None]
  - BRAIN OEDEMA [None]
  - CARDIAC ARREST [None]
  - CEREBRAL HAEMORRHAGE [None]
  - DIARRHOEA [None]
  - EPISTAXIS [None]
  - GASTROINTESTINAL NECROSIS [None]
  - HYPOTENSION [None]
  - MYDRIASIS [None]
  - RASH [None]
  - RESPIRATORY ARREST [None]
  - SHOCK [None]
  - VASCULITIS [None]
